FAERS Safety Report 9253020 (Version 1)
Quarter: 2013Q2

REPORT INFORMATION
  Report Type: Spontaneous
  Country: JP (occurrence: JP)
  Receive Date: 20130424
  Receipt Date: 20130424
  Transmission Date: 20140414
  Serious: Yes (Hospitalization)
  Sender: FDA-Public Use
  Company Number: JP-ELI_LILLY_AND_COMPANY-JP201302006017

PATIENT
  Age: 65 Year
  Sex: Female

DRUGS (2)
  1. FORTEO [Suspect]
     Route: 058
  2. FORTEO [Suspect]
     Dosage: UNK
     Route: 058

REACTIONS (3)
  - Calculus ureteric [Recovered/Resolved]
  - Abnormal sensation in eye [Unknown]
  - Ocular hyperaemia [Recovered/Resolved]
